FAERS Safety Report 9044095 (Version 2)
Quarter: 2013Q1

REPORT INFORMATION
  Report Type: Spontaneous
  Country: US (occurrence: US)
  Receive Date: 20130130
  Receipt Date: 20130220
  Transmission Date: 20140127
  Serious: Yes (Other)
  Sender: FDA-Public Use
  Company Number: US-JNJFOC-20130113038

PATIENT
  Sex: Male

DRUGS (6)
  1. CLADRIBINE [Suspect]
     Indication: T-CELL PROLYMPHOCYTIC LEUKAEMIA
     Dosage: ON DAY 1-5
     Route: 042
  2. ALEMTUZUMAB [Suspect]
     Indication: T-CELL PROLYMPHOCYTIC LEUKAEMIA
     Dosage: DAY 1, 3, 5
     Route: 058
  3. VORINOSTAT [Suspect]
     Indication: T-CELL PROLYMPHOCYTIC LEUKAEMIA
     Dosage: DAY 1, 3, 5
     Route: 048
  4. ROMIDEPSIN [Suspect]
     Indication: T-CELL PROLYMPHOCYTIC LEUKAEMIA
     Dosage: DAY 1, 18, 15
     Route: 042
  5. BRENTUXIMAB VEDOTIN [Suspect]
     Indication: T-CELL PROLYMPHOCYTIC LEUKAEMIA
     Route: 042
  6. ALL OTHER THERAPEUTIC PRODUCTS [Suspect]
     Indication: T-CELL PROLYMPHOCYTIC LEUKAEMIA
     Route: 065

REACTIONS (2)
  - Skin lesion [Recovering/Resolving]
  - Therapeutic product ineffective [Unknown]
